FAERS Safety Report 21932188 (Version 1)
Quarter: 2023Q1

REPORT INFORMATION
  Report Type: Spontaneous
  Country: US (occurrence: None)
  Receive Date: 20230131
  Receipt Date: 20230131
  Transmission Date: 20230417
  Serious: Yes (Hospitalization)
  Sender: FDA-Public Use
  Company Number: None

PATIENT
  Age: 76 Year
  Sex: Male
  Weight: 94.8 kg

DRUGS (2)
  1. CISPLATIN [Suspect]
     Active Substance: CISPLATIN
     Dates: end: 20230117
  2. GEMCITABINE HYDROCHLORIDE [Suspect]
     Active Substance: GEMCITABINE HYDROCHLORIDE
     Dates: end: 20230117

REACTIONS (14)
  - Asthenia [None]
  - Dyspnoea exertional [None]
  - Dizziness [None]
  - Presyncope [None]
  - Therapy interrupted [None]
  - Haemoglobin decreased [None]
  - Haematocrit decreased [None]
  - Blood sodium decreased [None]
  - Blood chloride decreased [None]
  - Blood urea increased [None]
  - Ventricular hypertrophy [None]
  - Orthostatic hypotension [None]
  - Tricuspid valve incompetence [None]
  - Mitral valve incompetence [None]

NARRATIVE: CASE EVENT DATE: 20230123
